FAERS Safety Report 21002514 (Version 1)
Quarter: 2022Q2

REPORT INFORMATION
  Report Type: Spontaneous
  Country: ES (occurrence: ES)
  Receive Date: 20220624
  Receipt Date: 20220624
  Transmission Date: 20220721
  Serious: Yes (Hospitalization, Other)
  Sender: FDA-Public Use
  Company Number: ES-LEADINGPHARMA-ES-2022LEALIT00094

PATIENT
  Age: 40 Year
  Sex: Male

DRUGS (1)
  1. OSELTAMIVIR PHOSPHATE [Suspect]
     Active Substance: OSELTAMIVIR PHOSPHATE
     Indication: Influenza like illness
     Route: 065

REACTIONS (1)
  - Porphyria acute [Recovered/Resolved]
